FAERS Safety Report 5737148-5 (Version None)
Quarter: 2008Q2

REPORT INFORMATION
  Report Type: 
  Country: None (occurrence: None)
  Receive Date: 20080514
  Receipt Date: 20080505
  Transmission Date: 20081010
  Serious: Yes (Death)
  Sender: FDA-Public Use
  Company Number: IL-NOVOPROD-272979

PATIENT
  Age: 5 Year
  Sex: Male
  Weight: 20 kg

DRUGS (5)
  1. NOVOSEVEN [Suspect]
     Indication: HAEMORRHAGE
     Dosage: 1.2 MG, UNK
     Dates: start: 20080305
  2. BLOOD CELLS, PACKED HUMAN [Concomitant]
     Dosage: 2 U, UNK
  3. PLATELETS [Concomitant]
     Dosage: 5 UNK, UNK
  4. CRYOPRECIPITATES [Concomitant]
     Dates: start: 20080305
  5. FRESH FROZEN PLASMA [Concomitant]
     Dates: start: 20080305

REACTIONS (1)
  - DEATH [None]
